FAERS Safety Report 8375122 (Version 4)
Quarter: 2014Q1

REPORT INFORMATION
  Report Type: Spontaneous
  Country: US (occurrence: US)
  Receive Date: 20120131
  Receipt Date: 20140124
  Transmission Date: 20141002
  Serious: Yes (Other)
  Sender: FDA-Public Use
  Company Number: US-BAYER-2012-009337

PATIENT
  Age: 19 Year
  Sex: Female
  Weight: 113 kg

DRUGS (3)
  1. OCELLA [Suspect]
     Indication: CONTRACEPTION
     Dosage: UNK
     Dates: start: 200907, end: 200911
  2. SUCRALFATE [Concomitant]
     Dosage: 1 G, UNK
     Route: 048
  3. TRIMETHOBENZAMIDE [Concomitant]
     Dosage: 300 MG, UNK
     Route: 048

REACTIONS (4)
  - Gallbladder disorder [None]
  - Injury [None]
  - Pain [None]
  - Cholecystitis chronic [None]
